FAERS Safety Report 7580835-7 (Version None)
Quarter: 2011Q2

REPORT INFORMATION
  Report Type: 
  Country: None (occurrence: None)
  Receive Date: 20110629
  Receipt Date: 20110622
  Transmission Date: 20111010
  Serious: Yes (Other)
  Sender: FDA-Public Use
  Company Number: IT-PFIZER INC-2011140514

PATIENT
  Age: 50 Year
  Sex: Female

DRUGS (6)
  1. EPIRUBICIN HYDROCHLORIDE [Suspect]
     Indication: BREAST CANCER FEMALE
     Dosage: 148 MG, CYCLIC
     Route: 042
     Dates: start: 20110113
  2. CYCLOPHOSPHAMIDE [Suspect]
     Indication: BREAST CANCER FEMALE
     Dosage: 984 MG, CYCLIC
     Route: 042
     Dates: start: 20110113
  3. FLUOROURACIL [Suspect]
     Indication: BREAST CANCER FEMALE
     Dosage: 984 MG, CYCLIC
     Route: 042
     Dates: start: 20110113
  4. KYTRIL [Concomitant]
  5. METOCLOPRAMIDE HYDROCHLORIDE [Concomitant]
  6. DECADRON [Concomitant]

REACTIONS (2)
  - HYPOTENSION [None]
  - VERTIGO [None]
